FAERS Safety Report 8965149 (Version 1)
Quarter: 2012Q4

REPORT INFORMATION
  Report Type: 
  Country: FR (occurrence: FR)
  Receive Date: 20121213
  Receipt Date: 20121213
  Transmission Date: 20130627
  Serious: Yes (Life-Threatening, Hospitalization)
  Sender: FDA-Public Use
  Company Number: FR-BRISTOL-MYERS SQUIBB COMPANY-17168055

PATIENT
  Age: 52 Year
  Sex: Male

DRUGS (9)
  1. REYATAZ CAPS 300 MG [Suspect]
     Indication: HIV INFECTION
     Route: 048
     Dates: start: 20090725
  2. VIDEX EC [Suspect]
     Indication: HIV INFECTION
     Dosage: capsule
     Route: 048
     Dates: start: 20010811
  3. NORVIR [Suspect]
     Indication: HIV INFECTION
     Route: 048
     Dates: start: 20090725
  4. ZIAGEN [Suspect]
     Indication: HIV INFECTION
     Route: 048
     Dates: start: 20010811
  5. FENOFIBRATE [Concomitant]
  6. UVEDOSE [Concomitant]
     Dosage: 100,000 IU/2 mL
  7. TOCO [Concomitant]
     Dosage: toco 500
  8. ASPIRINE [Concomitant]
  9. DAFALGAN [Concomitant]

REACTIONS (1)
  - Myocardial infarction [Recovered/Resolved with Sequelae]
